FAERS Safety Report 8459434-0 (Version None)
Quarter: 2012Q2

REPORT INFORMATION
  Report Type: 
  Country: None (occurrence: None)
  Receive Date: 20120622
  Receipt Date: 20120618
  Transmission Date: 20120825
  Serious: Yes (Other)
  Sender: FDA-Public Use
  Company Number: US-PFIZER INC-2012113351

PATIENT
  Age: 72 Year
  Sex: Female

DRUGS (2)
  1. DOXYCYCLINE HYCLATE [Suspect]
     Indication: COUGH
  2. DOXYCYCLINE HYCLATE [Suspect]
     Indication: SINUS DISORDER
     Dosage: UNK
     Dates: start: 20120101

REACTIONS (7)
  - VOMITING [None]
  - FUNGAL INFECTION [None]
  - IMPAIRED DRIVING ABILITY [None]
  - ABASIA [None]
  - FEELING ABNORMAL [None]
  - MALAISE [None]
  - GASTROINTESTINAL DISORDER [None]
